FAERS Safety Report 18885231 (Version 2)
Quarter: 2021Q2

REPORT INFORMATION
  Report Type: Spontaneous
  Country: US (occurrence: US)
  Receive Date: 20210212
  Receipt Date: 20210518
  Transmission Date: 20210717
  Serious: Yes (Other)
  Sender: FDA-Public Use
  Company Number: US-GLAXOSMITHKLINE-US2021GSK037926

PATIENT
  Sex: Female

DRUGS (8)
  1. ZANTAC [Suspect]
     Active Substance: RANITIDINE HYDROCHLORIDE
     Indication: GASTRIC ULCER
     Dosage: 150 MG,TWICE DAILY
     Route: 065
     Dates: start: 199701, end: 201812
  2. RANITIDINE. [Suspect]
     Active Substance: RANITIDINE
     Indication: GASTRIC ULCER
     Dosage: 150 MG,TWICE DAILY
     Route: 065
     Dates: start: 200003, end: 201812
  3. ZANTAC [Suspect]
     Active Substance: RANITIDINE HYDROCHLORIDE
     Indication: GASTRIC ULCER
     Dosage: 150 MG,TWICE DAILY
     Route: 065
     Dates: start: 199701, end: 201812
  4. ZANTAC [Suspect]
     Active Substance: RANITIDINE HYDROCHLORIDE
     Indication: DYSPEPSIA
     Dosage: 75 MG,TWICE DAILY
     Route: 065
     Dates: start: 199701, end: 201812
  5. ZANTAC [Suspect]
     Active Substance: RANITIDINE HYDROCHLORIDE
     Indication: DYSPEPSIA
     Dosage: 75 MG,TWICE DAILY
     Route: 065
     Dates: start: 199701, end: 201812
  6. RANITIDINE. [Suspect]
     Active Substance: RANITIDINE
     Indication: DYSPEPSIA
     Dosage: 75 MG,TWICE DAILY
     Route: 065
     Dates: start: 200003, end: 201812
  7. RANITIDINE. [Suspect]
     Active Substance: RANITIDINE
     Indication: GASTRIC ULCER
     Dosage: 150 MG,TWICE DAILY
     Route: 065
     Dates: start: 200003, end: 201812
  8. RANITIDINE. [Suspect]
     Active Substance: RANITIDINE
     Indication: DYSPEPSIA
     Dosage: 75 MG,TWICE DAILY
     Route: 065
     Dates: start: 200003, end: 201812

REACTIONS (1)
  - Haematological malignancy [Unknown]
